FAERS Safety Report 9757252 (Version 2)
Quarter: 2013Q4

REPORT INFORMATION
  Report Type: Report from Study
  Country: US (occurrence: US)
  Receive Date: 20131213
  Receipt Date: 20131226
  Transmission Date: 20140711
  Serious: Yes (Hospitalization, Other)
  Sender: FDA-Public Use
  Company Number: US-ABBVIE-13P-163-1177625-00

PATIENT
  Age: 2 Year
  Sex: Female

DRUGS (5)
  1. HUMIRA [Suspect]
     Indication: JUVENILE IDIOPATHIC ARTHRITIS
  2. HUMIRA [Suspect]
     Indication: UVEITIS
     Dates: start: 201306
  3. HUMIRA [Suspect]
     Route: 058
     Dates: start: 201307
  4. METHOTREXATE [Concomitant]
     Indication: PRODUCT USED FOR UNKNOWN INDICATION
     Dosage: SIX PILLS PER WEEK
  5. FOLIC ACID [Concomitant]
     Indication: PRODUCT USED FOR UNKNOWN INDICATION

REACTIONS (11)
  - Uveitis [Not Recovered/Not Resolved]
  - Cataract operation [Unknown]
  - Drug ineffective [Unknown]
  - Drug ineffective [Unknown]
  - Malaise [Unknown]
  - Eye inflammation [Unknown]
  - Injection site pain [Not Recovered/Not Resolved]
  - Injection site pain [Not Recovered/Not Resolved]
  - Injection site pain [Unknown]
  - Hepatic enzyme increased [Unknown]
  - Injection site pain [Unknown]
